FAERS Safety Report 5826178-0 (Version None)
Quarter: 2008Q3

REPORT INFORMATION
  Report Type: 
  Country: None (occurrence: None)
  Receive Date: 20080723
  Receipt Date: 20080707
  Transmission Date: 20090109
  Serious: Yes (Other)
  Sender: FDA-Public Use
  Company Number: 8027194

PATIENT
  Age: 16 Year
  Sex: Male
  Weight: 65 kg

DRUGS (5)
  1. KEPPRA [Suspect]
     Indication: EPILEPSY
     Dosage: 1500 MG 2/D PO
     Route: 048
     Dates: start: 20060501, end: 20070913
  2. KEPPRA [Suspect]
     Indication: EPILEPSY
     Dosage: 2500 MG /D PO
     Route: 048
     Dates: start: 20070914, end: 20071201
  3. KEPPRA [Suspect]
     Indication: EPILEPSY
     Dosage: 1000 MG 2/D PO
     Route: 048
     Dates: start: 20071201
  4. CARBAMAZEPINE [Suspect]
     Indication: EPILEPSY
     Dosage: 300 MG 2/D PO
     Route: 048
     Dates: start: 20070101
  5. PRENDISOLONE [Concomitant]

REACTIONS (6)
  - ANGINA PECTORIS [None]
  - COLLAGEN DISORDER [None]
  - HYPERSENSITIVITY [None]
  - MUSCULOSKELETAL PAIN [None]
  - SYSTEMIC LUPUS ERYTHEMATOSUS [None]
  - WEIGHT DECREASED [None]
